FAERS Safety Report 10127516 (Version 2)
Quarter: 2015Q1

REPORT INFORMATION
  Report Type: Other
  Country: US (occurrence: US)
  Receive Date: 20140428
  Receipt Date: 20150210
  Transmission Date: 20150720
  Serious: Yes (Other)
  Sender: FDA-Public Use
  Company Number: US-GSKPPD-2014GSK028412

PATIENT
  Age: 62 Year
  Sex: Female

DRUGS (5)
  1. AVANDIA [Suspect]
     Active Substance: ROSIGLITAZONE MALEATE
     Indication: DIABETES MELLITUS
     Route: 048
     Dates: start: 200707
  2. ASPIRIN. [Concomitant]
     Active Substance: ASPIRIN
  3. COZAAR [Concomitant]
     Active Substance: LOSARTAN POTASSIUM
     Dates: start: 200707
  4. DIGOXIN. [Concomitant]
     Active Substance: DIGOXIN
  5. COREG [Concomitant]
     Active Substance: CARVEDILOL

REACTIONS (1)
  - Myocardial infarction [Recovered/Resolved]

NARRATIVE: CASE EVENT DATE: 20070703
